FAERS Safety Report 6814561-6 (Version None)
Quarter: 2010Q2

REPORT INFORMATION
  Report Type: 
  Country: None (occurrence: None)
  Receive Date: 20100629
  Receipt Date: 20100625
  Transmission Date: 20101027
  Serious: Yes (Other)
  Sender: FDA-Public Use
  Company Number: BER/UKI/10/0013788

PATIENT
  Age: 77 Year
  Sex: Male

DRUGS (2)
  1. SERTRALINE (SERTRALINE) [Suspect]
     Indication: DRUG USE FOR UNKNOWN INDICATION
     Dosage: 100 MG
  2. SIMVASTATIN [Concomitant]

REACTIONS (2)
  - CONVULSION [None]
  - DRUG DISPENSING ERROR [None]
